FAERS Safety Report 13633806 (Version 1)
Quarter: 2017Q2

REPORT INFORMATION
  Report Type: Spontaneous
  Country: US (occurrence: US)
  Receive Date: 20170531
  Receipt Date: 20170531
  Transmission Date: 20170830
  Serious: No
  Sender: FDA-Public Use
  Company Number: US-ASTELLAS-1579454

PATIENT
  Sex: Female

DRUGS (5)
  1. TOPROL XL [Concomitant]
     Active Substance: METOPROLOL SUCCINATE
  2. SINEMET [Concomitant]
     Active Substance: CARBIDOPA\LEVODOPA
  3. CELEBREX [Concomitant]
     Active Substance: CELECOXIB
  4. TARCEVA [Suspect]
     Active Substance: ERLOTINIB HYDROCHLORIDE
     Indication: LUNG NEOPLASM MALIGNANT
     Route: 048
     Dates: start: 20150507
  5. LEVODOPA [Concomitant]
     Active Substance: LEVODOPA

REACTIONS (10)
  - Diarrhoea [Unknown]
  - Myalgia [Unknown]
  - Mitral valve prolapse [Unknown]
  - Hot flush [Unknown]
  - Skin irritation [Unknown]
  - Drug ineffective [Unknown]
  - Fatigue [Unknown]
  - Skin exfoliation [Unknown]
  - Heart rate decreased [Unknown]
  - Nausea [Unknown]
